FAERS Safety Report 4493914-8 (Version None)
Quarter: 2004Q4

REPORT INFORMATION
  Report Type: 
  Country: None (occurrence: None)
  Receive Date: 20041102
  Receipt Date: 20041019
  Transmission Date: 20050328
  Serious: Yes (Death, Hospitalization)
  Sender: FDA-Public Use
  Company Number: 201438

PATIENT

DRUGS (3)
  1. MABTHERA(RITUXIMAB) CONC FOR SOLUTION FOR INFUSION [Suspect]
     Indication: DIFFUSE LARGE B-CELL LYMPHOMA
     Dosage: 250 MG/M2 INTRAVENOUS
     Route: 042
     Dates: start: 20030429, end: 20030429
  2. IN-111 ZEVALIN (IBRITUMOMAB TIUXETAN,  INDIUM-111) [Suspect]
     Dosage: 1 SINGLE
     Dates: start: 20030429, end: 20030429
  3. ZEVALIN [Suspect]
     Dosage: 0.44 MCI/KG SINGLE INTRAVENOUS
     Route: 042

REACTIONS (5)
  - DEHYDRATION [None]
  - DIARRHOEA [None]
  - DISEASE PROGRESSION [None]
  - OEDEMA PERIPHERAL [None]
  - PERFORMANCE STATUS DECREASED [None]
